FAERS Safety Report 5314245-X (Version None)
Quarter: 2007Q2

REPORT INFORMATION
  Report Type: 
  Country: None (occurrence: None)
  Receive Date: 20070425
  Receipt Date: 20070413
  Transmission Date: 20071010
  Serious: Yes (Other)
  Sender: FDA-Public Use
  Company Number: 4416

PATIENT
  Age: 36 Year
  Sex: Female
  Weight: 74.8435 kg

DRUGS (3)
  1. AMNESTEEM [Suspect]
     Dosage: SEE IMAGE
     Dates: start: 20061128
  2. AMNESTEEM [Suspect]
     Dosage: SEE IMAGE
     Dates: start: 20061220
  3. ISOTRETINOIN [Suspect]

REACTIONS (5)
  - BACK PAIN [None]
  - DERMATITIS CONTACT [None]
  - DRUG EXPOSURE DURING PREGNANCY [None]
  - DRY SKIN [None]
  - PREGNANCY [None]
